FAERS Safety Report 8106644-8 (Version None)
Quarter: 2012Q1

REPORT INFORMATION
  Report Type: 
  Country: None (occurrence: None)
  Receive Date: 20120202
  Receipt Date: 20120130
  Transmission Date: 20120608
  Serious: No
  Sender: FDA-Public Use
  Company Number: US-BAYER-2012-009763

PATIENT
  Age: 50 Year
  Sex: Female

DRUGS (2)
  1. GADAVIST [Suspect]
     Indication: NEOPLASM
  2. GADAVIST [Suspect]
     Indication: NUCLEAR MAGNETIC RESONANCE IMAGING
     Dosage: UNK UNK, ONCE
     Dates: start: 20120126

REACTIONS (1)
  - URTICARIA [None]
